FAERS Safety Report 24927605 (Version 1)
Quarter: 2025Q1

REPORT INFORMATION
  Report Type: Spontaneous
  Country: AU (occurrence: AT)
  Receive Date: 20250205
  Receipt Date: 20250205
  Transmission Date: 20250409
  Serious: Yes (Death)
  Sender: EMD SERONO INC
  Company Number: AU-Merck Healthcare KGaA-2025005805

PATIENT

DRUGS (1)
  1. TEPOTINIB [Suspect]
     Active Substance: TEPOTINIB
     Indication: Transmembrane receptor tyrosine kinase overexpression

REACTIONS (2)
  - Disease progression [Fatal]
  - Off label use [Unknown]
